FAERS Safety Report 19998194 (Version 1)
Quarter: 2021Q4

REPORT INFORMATION
  Report Type: Spontaneous
  Country: FR (occurrence: FR)
  Receive Date: 20211026
  Receipt Date: 20211026
  Transmission Date: 20220303
  Serious: Yes (Other)
  Sender: FDA-Public Use
  Company Number: FR-ABBVIE-21K-056-4131820-00

PATIENT
  Age: 40 Year
  Sex: Male
  Weight: 96 kg

DRUGS (5)
  1. VALPROATE SODIUM [Suspect]
     Active Substance: VALPROATE SODIUM
     Indication: Product used for unknown indication
     Route: 048
  2. CHLORPROMAZINE [Suspect]
     Active Substance: CHLORPROMAZINE
     Indication: Product used for unknown indication
     Route: 048
  3. DIAZEPAM [Suspect]
     Active Substance: DIAZEPAM
     Indication: Product used for unknown indication
     Route: 048
  4. DIAZEPAM [Suspect]
     Active Substance: DIAZEPAM
     Dosage: DOSE INCREASED
     Route: 048
  5. HALOPERIDOL [Suspect]
     Active Substance: HALOPERIDOL
     Indication: Product used for unknown indication
     Route: 048

REACTIONS (2)
  - Blood creatine phosphokinase increased [Not Recovered/Not Resolved]
  - Neutropenia [Not Recovered/Not Resolved]

NARRATIVE: CASE EVENT DATE: 20190429
